FAERS Safety Report 18107778 (Version 1)
Quarter: 2020Q3

REPORT INFORMATION
  Report Type: Report from Study
  Country: US (occurrence: US)
  Receive Date: 20200803
  Receipt Date: 20200803
  Transmission Date: 20201103
  Serious: Yes (Hospitalization)
  Sender: FDA-Public Use
  Company Number: US-ACTELION-A-US2020-203731

PATIENT
  Age: 41 Year
  Sex: Female
  Weight: 80.73 kg

DRUGS (7)
  1. VELETRI [Suspect]
     Active Substance: EPOPROSTENOL
     Indication: PULMONARY ARTERIAL HYPERTENSION
     Dosage: 86 NG/KG, PER MIN
     Route: 042
  2. OXYGEN. [Concomitant]
     Active Substance: OXYGEN
     Dosage: 6 L
  3. LETAIRIS [Concomitant]
     Active Substance: AMBRISENTAN
  4. ADCIRCA [Concomitant]
     Active Substance: TADALAFIL
  5. VELETRI [Suspect]
     Active Substance: EPOPROSTENOL
     Dosage: 96 NG/KG, PER MIN
     Route: 042
  6. VELETRI [Suspect]
     Active Substance: EPOPROSTENOL
     Dosage: 102.25 NG/KG, PER MIN
     Route: 042
  7. VELETRI [Suspect]
     Active Substance: EPOPROSTENOL
     Dosage: 103.5 NG/KG, PER MIN
     Route: 042

REACTIONS (22)
  - Syncope [Unknown]
  - Dyspnoea [Recovering/Resolving]
  - Catheter management [Unknown]
  - Oxygen consumption increased [Recovering/Resolving]
  - Chest pain [Recovering/Resolving]
  - Hospitalisation [Unknown]
  - Abdominal pain upper [Unknown]
  - Device occlusion [Recovering/Resolving]
  - Nausea [Unknown]
  - Back pain [Unknown]
  - Pallor [Recovering/Resolving]
  - Device alarm issue [Not Recovered/Not Resolved]
  - Feeling abnormal [Unknown]
  - Therapy non-responder [Unknown]
  - Diarrhoea [Unknown]
  - Dizziness [Recovering/Resolving]
  - Rash [Unknown]
  - Bone pain [Unknown]
  - Vomiting [Unknown]
  - Decreased appetite [Unknown]
  - Pain in jaw [Unknown]
  - Complication associated with device [Recovering/Resolving]

NARRATIVE: CASE EVENT DATE: 20200428
